FAERS Safety Report 5907203-5 (Version None)
Quarter: 2008Q4

REPORT INFORMATION
  Report Type: 
  Country: None (occurrence: None)
  Receive Date: 20081003
  Receipt Date: 20080923
  Transmission Date: 20090506
  Serious: Yes (Death)
  Sender: FDA-Public Use
  Company Number: US-ROCHE-580089

PATIENT
  Sex: Male

DRUGS (1)
  1. CAPECITABINE [Suspect]
     Dosage: DOSE: 650 MG/ M2 BID = 1000 MG BID
     Route: 048
     Dates: start: 20080421

REACTIONS (1)
  - PULMONARY EMBOLISM [None]
